FAERS Safety Report 10449550 (Version 1)
Quarter: 2014Q3

REPORT INFORMATION
  Report Type: Spontaneous
  Country: US (occurrence: US)
  Receive Date: 20140912
  Receipt Date: 20140912
  Transmission Date: 20150326
  Serious: Yes (Other)
  Sender: FDA-Public Use
  Company Number: US-DSJP-DSU-2014-121454

PATIENT

DRUGS (1)
  1. BENICAR [Suspect]
     Active Substance: OLMESARTAN MEDOXOMIL
     Indication: HYPERTENSION
     Dosage: 20 MG, QD
     Route: 048
     Dates: start: 2010, end: 201406

REACTIONS (7)
  - Headache [Unknown]
  - Nausea [Unknown]
  - Tremor [Unknown]
  - Blood pressure increased [Unknown]
  - Lethargy [Unknown]
  - Ocular hyperaemia [Unknown]
  - Retching [Unknown]

NARRATIVE: CASE EVENT DATE: 201312
